FAERS Safety Report 5978736-0 (Version None)
Quarter: 2008Q4

REPORT INFORMATION
  Report Type: 
  Country: None (occurrence: None)
  Receive Date: 20081126
  Receipt Date: 20081119
  Transmission Date: 20090506
  Serious: Yes (Other)
  Sender: FDA-Public Use
  Company Number: 2008-04399

PATIENT
  Age: 64 Year
  Sex: Female

DRUGS (3)
  1. VELCADE [Suspect]
     Indication: MULTIPLE MYELOMA
     Dosage: 2 MG,
     Dates: end: 20080701
  2. VELCADE [Suspect]
     Indication: MULTIPLE MYELOMA
     Dosage: 2 MG,
     Dates: start: 20081101, end: 20081101
  3. DEXAMETHASONE [Concomitant]

REACTIONS (1)
  - VAGINAL HAEMORRHAGE [None]
